FAERS Safety Report 5291276-X (Version None)
Quarter: 2007Q2

REPORT INFORMATION
  Report Type: 
  Country: None (occurrence: None)
  Receive Date: 20070409
  Receipt Date: 20070326
  Transmission Date: 20071010
  Serious: Yes (Hospitalization, Other)
  Sender: FDA-Public Use
  Company Number: US-PFIZER INC-2006118738

PATIENT
  Sex: Male
  Weight: 86.2 kg

DRUGS (1)
  1. BEXTRA [Suspect]
     Indication: INTERVERTEBRAL DISC PROTRUSION
     Route: 048

REACTIONS (7)
  - ANXIETY [None]
  - CARDIOGENIC SHOCK [None]
  - DEPRESSION [None]
  - HAEMATOMA [None]
  - MYOCARDIAL INFARCTION [None]
  - PNEUMONITIS [None]
  - VENTRICULAR FIBRILLATION [None]
